FAERS Safety Report 7461465-4 (Version None)
Quarter: 2011Q2

REPORT INFORMATION
  Report Type: 
  Country: None (occurrence: None)
  Receive Date: 20110506
  Receipt Date: 20110503
  Transmission Date: 20111010
  Serious: Yes (Other)
  Sender: FDA-Public Use
  Company Number: US-PFIZER INC-2011039576

PATIENT
  Sex: Female

DRUGS (10)
  1. ALTACE [Concomitant]
     Indication: HYPERTENSION
     Dosage: UNK
     Dates: start: 20000101
  2. GLUCOPHAGE [Concomitant]
     Indication: DIABETES MELLITUS
     Dosage: UNK
     Dates: start: 20070101
  3. ZETIA [Concomitant]
     Indication: BLOOD CHOLESTEROL INCREASED
     Dosage: UNK
     Dates: start: 20070101
  4. CHANTIX [Suspect]
     Dosage: UNK
     Dates: start: 20090501, end: 20090601
  5. CHANTIX [Suspect]
     Indication: SMOKING CESSATION THERAPY
     Dosage: UNK
     Dates: start: 20080201, end: 20080301
  6. SKELAXIN [Concomitant]
     Indication: MUSCLE RELAXANT THERAPY
     Dosage: UNK
     Dates: start: 20000101
  7. DARVOCET [Concomitant]
     Indication: PAIN
     Dosage: UNK
     Dates: start: 20000101, end: 20100101
  8. DYNACIRC [Concomitant]
     Indication: HYPERTENSION
     Dosage: UNK
     Dates: start: 20000101
  9. LISINOPRIL [Concomitant]
     Indication: HYPERTENSION
     Dosage: UNK
     Dates: start: 20000101
  10. GABAPENTIN [Concomitant]
     Indication: PAIN
     Dosage: UNK
     Dates: start: 20000101

REACTIONS (5)
  - DEPRESSION [None]
  - SUICIDAL IDEATION [None]
  - NIGHTMARE [None]
  - AGGRESSION [None]
  - ANXIETY [None]
